FAERS Safety Report 14946376 (Version 3)
Quarter: 2018Q4

REPORT INFORMATION
  Report Type: Spontaneous
  Country: US (occurrence: US)
  Receive Date: 20180529
  Receipt Date: 20181217
  Transmission Date: 20190204
  Serious: Yes (Other)
  Sender: FDA-Public Use
  Company Number: US-SA-2018SA143544

PATIENT
  Age: 47 Year
  Sex: Female

DRUGS (6)
  1. TAXOTERE [Suspect]
     Active Substance: DOCETAXEL
     Indication: BREAST CANCER FEMALE
     Dosage: 60MG;160MG WEEKLY;3 WEEKS ON/OFF;EVERY 21 DAYS
     Route: 042
     Dates: start: 20061121, end: 20061121
  2. PARAPLATIN [Concomitant]
     Active Substance: CARBOPLATIN
  3. HERCEPTIN [Concomitant]
     Active Substance: TRASTUZUMAB
  4. COMPAZINE [Concomitant]
     Active Substance: PROCHLORPERAZINE MALEATE
  5. TAXOTERE [Suspect]
     Active Substance: DOCETAXEL
     Dosage: 60MG;160MG WEEKLY;3 WEEKS ON/OFF;EVERY 21 DAYS
     Route: 042
     Dates: start: 20100727, end: 20100727
  6. ZOFRAN [ONDANSETRON HYDROCHLORIDE] [Concomitant]

REACTIONS (2)
  - Alopecia [Recovering/Resolving]
  - Psychological trauma [Unknown]

NARRATIVE: CASE EVENT DATE: 20110127
